FAERS Safety Report 10349728 (Version 1)
Quarter: 2014Q3

REPORT INFORMATION
  Report Type: Spontaneous
  Country: AU (occurrence: AU)
  Receive Date: 20140730
  Receipt Date: 20140730
  Transmission Date: 20150326
  Serious: Yes (Death, Other)
  Sender: FDA-Public Use
  Company Number: PHHY2014AU091904

PATIENT
  Age: 17 Year
  Sex: Female

DRUGS (4)
  1. METHOTREXATE [Suspect]
     Active Substance: METHOTREXATE
     Indication: PROPHYLAXIS AGAINST GRAFT VERSUS HOST DISEASE
  2. CICLOSPORIN [Suspect]
     Active Substance: CYCLOSPORINE
     Indication: PROPHYLAXIS AGAINST GRAFT VERSUS HOST DISEASE
  3. PREDNISONE. [Suspect]
     Active Substance: PREDNISONE
     Indication: PROPHYLAXIS AGAINST GRAFT VERSUS HOST DISEASE
  4. NIFEDIPINE. [Concomitant]
     Active Substance: NIFEDIPINE
     Indication: HYPERTENSION

REACTIONS (13)
  - Skin lesion [Recovering/Resolving]
  - Diarrhoea [Fatal]
  - Vomiting [Recovering/Resolving]
  - Lung disorder [Fatal]
  - Urinary tract infection [Unknown]
  - Blindness [Recovering/Resolving]
  - Multi-organ failure [Fatal]
  - Graft complication [Fatal]
  - Acute graft versus host disease [Fatal]
  - Posterior reversible encephalopathy syndrome [Recovering/Resolving]
  - Headache [Recovering/Resolving]
  - Staphylococcal infection [Recovering/Resolving]
  - Adenovirus infection [Unknown]
